FAERS Safety Report 22152953 (Version 1)
Quarter: 2023Q1

REPORT INFORMATION
  Report Type: Report from Study
  Country: FR (occurrence: FR)
  Receive Date: 20230329
  Receipt Date: 20230329
  Transmission Date: 20230417
  Serious: Yes (Death, Hospitalization, Other)
  Sender: FDA-Public Use
  Company Number: FR-TAKEDA-2022TUS071055

PATIENT
  Age: 76 Year
  Sex: Male
  Weight: 78 kg

DRUGS (8)
  1. MARIBAVIR [Suspect]
     Active Substance: MARIBAVIR
     Indication: Cytomegalovirus infection
     Dosage: 200 MILLIGRAM, BID
     Route: 065
     Dates: start: 20220830, end: 20220920
  2. MARIBAVIR [Suspect]
     Active Substance: MARIBAVIR
     Dosage: 400 MILLIGRAM, BID
     Route: 048
     Dates: start: 20220831, end: 20220920
  3. MARIBAVIR [Suspect]
     Active Substance: MARIBAVIR
     Dosage: 200 MILLIGRAM
     Route: 048
     Dates: start: 20220831, end: 20221006
  4. MARIBAVIR [Suspect]
     Active Substance: MARIBAVIR
     Dosage: UNK
     Route: 048
     Dates: start: 20220831, end: 20221006
  5. MARIBAVIR [Suspect]
     Active Substance: MARIBAVIR
     Dosage: 400 MILLIGRAM, BID
     Route: 048
     Dates: start: 20220920, end: 20220922
  6. MARIBAVIR [Suspect]
     Active Substance: MARIBAVIR
     Dosage: 800 MILLIGRAM, BID
     Route: 048
     Dates: start: 20220921, end: 20221004
  7. MARIBAVIR [Suspect]
     Active Substance: MARIBAVIR
     Dosage: 800 MILLIGRAM, BID
     Route: 048
     Dates: start: 20220921, end: 20221006
  8. CYTOTEC [Concomitant]
     Active Substance: MISOPROSTOL
     Dosage: 4 MILLIGRAM/KILOGRAM
     Route: 065
     Dates: start: 20221031, end: 20221031

REACTIONS (9)
  - COVID-19 [Fatal]
  - Transplant rejection [Recovered/Resolved]
  - Renal transplant failure [Unknown]
  - Subileus [Recovered/Resolved]
  - Underdose [Unknown]
  - Overdose [Unknown]
  - Drug ineffective [Unknown]
  - Drug resistance [Unknown]
  - Renal disorder [Unknown]

NARRATIVE: CASE EVENT DATE: 20221004
